FAERS Safety Report 18095106 (Version 1)
Quarter: 2020Q3

REPORT INFORMATION
  Report Type: Report from Study
  Country: GB (occurrence: GB)
  Receive Date: 20200730
  Receipt Date: 20200730
  Transmission Date: 20201103
  Serious: Yes (Hospitalization)
  Sender: FDA-Public Use
  Company Number: GB-JNJFOC-20200734424

PATIENT
  Sex: Female
  Weight: 74.4 kg

DRUGS (42)
  1. MINOXIDIL. [Concomitant]
     Active Substance: MINOXIDIL
     Dates: start: 20170309
  2. PARACETAMOL [Concomitant]
     Active Substance: ACETAMINOPHEN
     Dates: start: 20170628
  3. NITROFURANTOIN. [Concomitant]
     Active Substance: NITROFURANTOIN
     Dates: start: 20171202, end: 20171204
  4. OMEPRAZOLE. [Concomitant]
     Active Substance: OMEPRAZOLE
     Dates: start: 20020801
  5. TELMISARTAN. [Concomitant]
     Active Substance: TELMISARTAN
     Dates: start: 20150101
  6. ZOLEDRONIC ACID [Concomitant]
     Active Substance: ZOLEDRONIC ACID
     Dates: start: 20170327
  7. DALTEPARIN [Concomitant]
     Active Substance: DALTEPARIN
     Dates: start: 20171011, end: 20171020
  8. ACTRAPID [Concomitant]
     Active Substance: INSULIN HUMAN
     Dates: start: 20171013, end: 20171018
  9. FUROSEMIDE. [Concomitant]
     Active Substance: FUROSEMIDE
     Dates: start: 20180201, end: 20180301
  10. DULOXETINE. [Concomitant]
     Active Substance: DULOXETINE
     Dates: start: 20180220, end: 20180601
  11. BISOPROLOL [Concomitant]
     Active Substance: BISOPROLOL
     Dates: start: 20180417
  12. STELARA [Suspect]
     Active Substance: USTEKINUMAB
     Indication: PSORIASIS
     Route: 058
     Dates: start: 20151119, end: 20180425
  13. TELMISARTAN. [Concomitant]
     Active Substance: TELMISARTAN
     Dates: start: 20031118
  14. GLICLAZIDE [Concomitant]
     Active Substance: GLICLAZIDE
     Dates: start: 20080101, end: 20080101
  15. ORAMORPH [Concomitant]
     Active Substance: MORPHINE SULFATE
     Dates: start: 20150901
  16. ATORVASTATIN [Concomitant]
     Active Substance: ATORVASTATIN
     Dates: start: 20170628
  17. HYDROCORTISONE. [Concomitant]
     Active Substance: HYDROCORTISONE
     Dates: start: 20180220, end: 20180301
  18. LANSOPRAZOLE. [Concomitant]
     Active Substance: LANSOPRAZOLE
     Dates: start: 20120701
  19. HUMULIN S [Concomitant]
     Dates: start: 20171209
  20. AMITRIPTYLINE [Concomitant]
     Active Substance: AMITRIPTYLINE
     Dates: start: 20171128
  21. DALTEPARIN [Concomitant]
     Active Substance: DALTEPARIN
     Dates: start: 20170818, end: 20170824
  22. MACROGOL [Concomitant]
     Active Substance: POLYETHYLENE GLYCOLS
     Dates: start: 20180116
  23. SIMVASTATIN. [Concomitant]
     Active Substance: SIMVASTATIN
     Dates: start: 20050101
  24. TRAMADOL. [Concomitant]
     Active Substance: TRAMADOL
     Dates: start: 20070101, end: 20170725
  25. OXYCODONE [Concomitant]
     Active Substance: OXYCODONE
     Dates: start: 20170725
  26. LAXIDO [Concomitant]
     Active Substance: POLYETHYLENE GLYCOL 3350\POTASSIUM CHLORIDE\SODIUM BICARBONATE\SODIUM CHLORIDE
     Dates: start: 20171013, end: 20171020
  27. FOLIC ACID. [Concomitant]
     Active Substance: FOLIC ACID
     Dates: start: 20180417
  28. PREDNISOLONE. [Concomitant]
     Active Substance: PREDNISOLONE
     Dates: start: 20090101
  29. PREGABALIN. [Concomitant]
     Active Substance: PREGABALIN
     Dates: start: 20151203
  30. DENOSUMAB [Concomitant]
     Active Substance: DENOSUMAB
     Dates: start: 20160511
  31. VITAMIN D                          /00107901/ [Concomitant]
     Active Substance: ERGOCALCIFEROL
     Dates: start: 20160524
  32. FEXOFENADINE [Concomitant]
     Active Substance: FEXOFENADINE HYDROCHLORIDE
     Dates: start: 20170628
  33. TRIAMCINOLONE [Concomitant]
     Active Substance: TRIAMCINOLONE
     Dates: start: 20170725, end: 20170725
  34. METHYLPREDNISOLONE. [Concomitant]
     Active Substance: METHYLPREDNISOLONE
     Dates: start: 20171202, end: 20171204
  35. TEICOPLANIN [Concomitant]
     Active Substance: TEICOPLANIN
     Dates: start: 20180221, end: 20180321
  36. DOCUSATE SODIUM. [Concomitant]
     Active Substance: DOCUSATE SODIUM
     Dates: start: 20180417
  37. SIMVASTATIN. [Concomitant]
     Active Substance: SIMVASTATIN
     Dates: start: 20030512
  38. BUTRANS [Concomitant]
     Active Substance: BUPRENORPHINE
     Dates: start: 20160725, end: 20170725
  39. SODIUM HYALURONATE [Concomitant]
     Active Substance: HYALURONATE SODIUM
     Dates: start: 20170628
  40. TRIAMCINOLONE [Concomitant]
     Active Substance: TRIAMCINOLONE
     Dates: start: 20171011, end: 20171011
  41. TRIAMCINOLONE [Concomitant]
     Active Substance: TRIAMCINOLONE
     Dates: start: 20171025, end: 20171025
  42. LEVOFLOXACIN. [Concomitant]
     Active Substance: LEVOFLOXACIN
     Dates: start: 20180221, end: 20180321

REACTIONS (4)
  - Acute kidney injury [Not Recovered/Not Resolved]
  - Cellulitis [Not Recovered/Not Resolved]
  - Spinal pain [Not Recovered/Not Resolved]
  - Urinary tract infection [Not Recovered/Not Resolved]

NARRATIVE: CASE EVENT DATE: 20171011
